FAERS Safety Report 11291358 (Version 2)
Quarter: 2015Q4

REPORT INFORMATION
  Report Type: Report from Study
  Country: US (occurrence: US)
  Receive Date: 20150722
  Receipt Date: 20151127
  Transmission Date: 20160304
  Serious: No
  Sender: FDA-Public Use
  Company Number: PHEH2013US018623

PATIENT
  Age: 37 Year
  Sex: Female
  Weight: 52.61 kg

DRUGS (3)
  1. GILENYA [Suspect]
     Active Substance: FINGOLIMOD HYDROCHLORIDE
     Indication: RELAPSING-REMITTING MULTIPLE SCLEROSIS
     Dosage: 0.5 MG, QD
     Route: 048
     Dates: start: 20130405, end: 20130620
  2. PRENATAL MULTIVITAMIN + DHA [Concomitant]
     Indication: PREGNANCY
     Route: 048
     Dates: start: 20130703
  3. SUDANIN [Concomitant]
     Indication: HYPERSENSITIVITY
     Dosage: 30 MG, QW
     Route: 048
     Dates: start: 20130916

REACTIONS (4)
  - Exposure during pregnancy [Unknown]
  - Normal newborn [Unknown]
  - Normal labour [Unknown]
  - Delivery [Unknown]

NARRATIVE: CASE EVENT DATE: 20130701
